FAERS Safety Report 5379711-X (Version None)
Quarter: 2007Q3

REPORT INFORMATION
  Report Type: 
  Country: None (occurrence: None)
  Receive Date: 20070706
  Receipt Date: 20070628
  Transmission Date: 20080115
  Serious: Yes (Other)
  Sender: FDA-Public Use
  Company Number: PHEH2007US08249

PATIENT
  Age: 53 Year
  Sex: Female
  Weight: 64.852 kg

DRUGS (13)
  1. ZELNORM [Suspect]
     Indication: CONSTIPATION
     Dosage: 6 MG, BID
     Route: 048
     Dates: start: 20051101, end: 20070501
  2. CELEXA [Concomitant]
     Dosage: 40 MG, QD
     Dates: start: 20030601
  3. BUSPAR [Concomitant]
     Dosage: 15 MG, 1/2 TAB BID
     Dates: start: 20030601
  4. ZANTAC [Concomitant]
     Dosage: 150 MG, BID
     Dates: start: 20030801
  5. ATENOLOL [Concomitant]
     Dosage: 50 MG, QD
     Dates: start: 20030601
  6. PRILOSEC [Concomitant]
     Dosage: 20 MG, BID
  7. PREMARIN [Concomitant]
     Dosage: 0.9 MG, QD
     Dates: start: 20030601
  8. ASPIRIN [Concomitant]
     Dosage: 81 MG, QD
     Dates: start: 20030601
  9. DURAGESIC-100 [Concomitant]
     Dosage: 75 UG, EVERY 3 DAYS
     Dates: start: 20030601
  10. PERCOCET [Concomitant]
     Dosage: 5 MG, PRN
     Dates: start: 20030101
  11. ELAVIL [Concomitant]
     Dosage: 100 MG, QD
     Dates: start: 20030601
  12. ATIVAN [Concomitant]
     Dosage: 0.5 MG, QD
     Dates: start: 20050101
  13. REQUIP [Concomitant]
     Dosage: 3 MG, QD
     Dates: start: 20060101

REACTIONS (4)
  - ANGIOPLASTY [None]
  - CHEST PAIN [None]
  - DYSPNOEA [None]
  - HYPERHIDROSIS [None]
